FAERS Safety Report 10263043 (Version 2)
Quarter: 2014Q2

REPORT INFORMATION
  Report Type: Spontaneous
  Country: US (occurrence: US)
  Receive Date: 20140626
  Receipt Date: 20140626
  Transmission Date: 20141212
  Serious: Yes (Death)
  Sender: FDA-Public Use
  Company Number: US-MYLANLABS-2013S1028013

PATIENT
  Age: 71 Year
  Sex: Female

DRUGS (5)
  1. CLOZAPINE TABLETS [Suspect]
     Indication: SCHIZOPHRENIA
     Route: 048
     Dates: start: 200605, end: 20131022
  2. CLOZAPINE TABLETS [Suspect]
     Indication: SCHIZOPHRENIA
     Route: 048
     Dates: start: 200605, end: 20131022
  3. HALDOL [Concomitant]
     Route: 048
  4. EFFEXOR [Concomitant]
     Route: 048
  5. XANAX [Concomitant]
     Dosage: PRN
     Route: 048

REACTIONS (1)
  - Death [Fatal]
